FAERS Safety Report 20603021 (Version 1)
Quarter: 2022Q1

REPORT INFORMATION
  Report Type: Spontaneous
  Country: FR (occurrence: FR)
  Receive Date: 20220316
  Receipt Date: 20220316
  Transmission Date: 20220424
  Serious: Yes (Hospitalization, Disabling, Congenital Anomaly)
  Sender: FDA-Public Use
  Company Number: FR-ABBVIE-22K-056-4317880-00

PATIENT
  Sex: Male
  Weight: 2.72 kg

DRUGS (1)
  1. VALPROATE SODIUM [Suspect]
     Active Substance: VALPROATE SODIUM
     Indication: Maternal exposure timing unspecified
     Route: 064

REACTIONS (27)
  - Syndactyly [Unknown]
  - Talipes [Unknown]
  - Strabismus [Unknown]
  - Psychiatric symptom [Unknown]
  - High arched palate [Unknown]
  - Dysmorphism [Unknown]
  - Hypotonia [Unknown]
  - Language disorder [Unknown]
  - Behaviour disorder [Unknown]
  - Intellectual disability [Unknown]
  - Language disorder [Unknown]
  - Limb asymmetry [Unknown]
  - Cognitive disorder [Unknown]
  - Scoliosis [Unknown]
  - Growth retardation [Unknown]
  - Delayed puberty [Unknown]
  - Lip disorder [Unknown]
  - Regurgitation [Unknown]
  - Nasopharyngitis [Unknown]
  - Educational problem [Unknown]
  - Anxiety [Unknown]
  - Bronchitis [Unknown]
  - Depression [Unknown]
  - Psychomotor hyperactivity [Unknown]
  - Personality disorder [Unknown]
  - Ear infection [Unknown]
  - Foetal exposure during pregnancy [Unknown]
